FAERS Safety Report 4641551-4 (Version None)
Quarter: 2005Q2

REPORT INFORMATION
  Report Type: 
  Country: None (occurrence: None)
  Receive Date: 20050421
  Receipt Date: 20050411
  Transmission Date: 20051028
  Serious: Yes (Hospitalization)
  Sender: FDA-Public Use
  Company Number: US-NOVOPROD-243412

PATIENT
  Age: 71 Year
  Sex: Female
  Weight: 73 kg

DRUGS (3)
  1. NOVOLOG MIX 70/30 [Suspect]
     Indication: INSULIN-REQUIRING TYPE II DIABETES MELLITUS
     Dosage: 10 IU, QD
     Route: 058
     Dates: start: 20041001, end: 20041210
  2. NOVOLOG MIX 70/30 [Suspect]
     Dosage: 10 IU, QD
     Route: 058
     Dates: start: 20041222
  3. GLUCOPHAGE [Concomitant]
     Indication: INSULIN-REQUIRING TYPE II DIABETES MELLITUS

REACTIONS (5)
  - BLOOD GLUCOSE INCREASED [None]
  - CHOLECYSTITIS [None]
  - PANCREATITIS [None]
  - POST PROCEDURAL COMPLICATION [None]
  - PULMONARY EMBOLISM [None]
